FAERS Safety Report 9425567 (Version 1)
Quarter: 2013Q3

REPORT INFORMATION
  Report Type: Spontaneous
  Country: US (occurrence: US)
  Receive Date: 20130729
  Receipt Date: 20130729
  Transmission Date: 20140515
  Serious: No
  Sender: FDA-Public Use
  Company Number: US-MYLANLABS-2012S1025566

PATIENT
  Age: 48 Year
  Sex: Female

DRUGS (2)
  1. LEVOTHYROXINE SODIUM TABLETS, USP [Suspect]
     Indication: HYPOTHYROIDISM
     Route: 048
     Dates: start: 201203
  2. BUPROPION HYDROCHLORIDE EXTENDED-RELEASE TABLETS USP, (SR) [Suspect]
     Indication: DEPRESSION
     Route: 048

REACTIONS (4)
  - Joint stiffness [Not Recovered/Not Resolved]
  - Flatulence [Not Recovered/Not Resolved]
  - Abdominal distension [Not Recovered/Not Resolved]
  - Reaction to drug excipients [Not Recovered/Not Resolved]
